FAERS Safety Report 16851681 (Version 1)
Quarter: 2019Q3

REPORT INFORMATION
  Report Type: Spontaneous
  Country: DE (occurrence: DE)
  Receive Date: 20190925
  Receipt Date: 20190925
  Transmission Date: 20191005
  Serious: Yes (Hospitalization)
  Sender: FDA-Public Use
  Company Number: DE-NORTHSTAR HEALTHCARE HOLDINGS-DE-2019NSR000139

PATIENT
  Age: 56 Month
  Weight: 13.5 kg

DRUGS (1)
  1. BACLOFEN. [Suspect]
     Active Substance: BACLOFEN
     Indication: MUSCLE SPASTICITY
     Dosage: 95 ?G/D
     Route: 037

REACTIONS (1)
  - Apnoea [Unknown]
